FAERS Safety Report 14833419 (Version 3)
Quarter: 2018Q4

REPORT INFORMATION
  Report Type: Spontaneous
  Country: RO (occurrence: RO)
  Receive Date: 20180501
  Receipt Date: 20181218
  Transmission Date: 20190204
  Serious: Yes (Other)
  Sender: FDA-Public Use
  Company Number: PHHY2018RO075013

PATIENT
  Age: 45 Year
  Sex: Female

DRUGS (2)
  1. AMOXICILLIN. [Suspect]
     Active Substance: AMOXICILLIN
     Indication: HELICOBACTER INFECTION
     Dosage: 1 G, UNK
     Route: 065
     Dates: start: 2015, end: 2015
  2. ESOMEPRAZOLE. [Suspect]
     Active Substance: ESOMEPRAZOLE MAGNESIUM
     Indication: HELICOBACTER INFECTION
     Dosage: 80 MG, UNK
     Route: 065
     Dates: start: 2015, end: 2015

REACTIONS (1)
  - Systemic lupus erythematosus [Recovered/Resolved]

NARRATIVE: CASE EVENT DATE: 201510
